FAERS Safety Report 20957158 (Version 3)
Quarter: 2023Q1

REPORT INFORMATION
  Report Type: Spontaneous
  Country: US (occurrence: US)
  Receive Date: 20220614
  Receipt Date: 20230316
  Transmission Date: 20230418
  Serious: No
  Sender: FDA-Public Use
  Company Number: US-PFIZER INC-202200828262

PATIENT
  Age: 69 Year
  Sex: Female

DRUGS (1)
  1. IBRANCE [Suspect]
     Active Substance: PALBOCICLIB
     Dosage: 125 MG

REACTIONS (7)
  - Gastrooesophageal reflux disease [Unknown]
  - Gingival pain [Unknown]
  - Arthralgia [Unknown]
  - Pain in extremity [Unknown]
  - Breast pain [Unknown]
  - Neck pain [Unknown]
  - Arthralgia [Unknown]
